FAERS Safety Report 11230844 (Version 2)
Quarter: 2015Q3

REPORT INFORMATION
  Report Type: Spontaneous
  Country: CA (occurrence: None)
  Receive Date: 20150629
  Receipt Date: 20150721
  Transmission Date: 20151125
  Serious: Yes (Hospitalization, Other)
  Sender: FDA-Public Use
  Company Number: 2015AP010111

PATIENT
  Age: 69 Year
  Sex: Female

DRUGS (2)
  1. FERRIPROX [Suspect]
     Active Substance: DEFERIPRONE
     Indication: SUPERFICIAL SIDEROSIS OF CENTRAL NERVOUS SYSTEM
     Route: 048
     Dates: start: 20121221
  2. NEUPOGEN (FILGRASTIM) [Concomitant]
     Active Substance: FILGRASTIM

REACTIONS (7)
  - Clostridium difficile infection [None]
  - Neutropenia [None]
  - Malaise [None]
  - Agranulocytosis [None]
  - Nausea [None]
  - Pyrexia [None]
  - Diarrhoea [None]

NARRATIVE: CASE EVENT DATE: 20150611
